FAERS Safety Report 4470868-1 (Version None)
Quarter: 2004Q4

REPORT INFORMATION
  Report Type: 
  Country: None (occurrence: None)
  Receive Date: 20041011
  Receipt Date: 20040930
  Transmission Date: 20050328
  Serious: Yes (Other)
  Sender: FDA-Public Use
  Company Number: PHEH2004US10539

PATIENT
  Age: 69 Year
  Sex: Female

DRUGS (1)
  1. ZOMETA [Suspect]
     Indication: RENAL CELL CARCINOMA STAGE UNSPECIFIED

REACTIONS (5)
  - ESCHERICHIA INFECTION [None]
  - INFLAMMATION [None]
  - OSTEOMYELITIS [None]
  - SEQUESTRECTOMY [None]
  - TOOTH EXTRACTION [None]
